FAERS Safety Report 4704509-2 (Version None)
Quarter: 2005Q2

REPORT INFORMATION
  Report Type: 
  Country: None (occurrence: None)
  Receive Date: 20050629
  Receipt Date: 20050616
  Transmission Date: 20051028
  Serious: Yes (Hospitalization)
  Sender: FDA-Public Use
  Company Number: 2005084723

PATIENT
  Age: 59 Year
  Sex: Male

DRUGS (3)
  1. LIPITOR [Suspect]
     Indication: ILL-DEFINED DISORDER
     Dosage: 10 MG (10 MG, 1 IN 1 D), ORAL
     Route: 048
  2. ACETYLSALICYLIC ACID ENTERIC COATED (ACETYLSALICYLIC ACID) [Concomitant]
  3. GLICLAZIDE (GLICLAZIDE) [Concomitant]

REACTIONS (2)
  - DIAPHRAGM MUSCLE WEAKNESS [None]
  - DIAPHRAGMATIC PARALYSIS [None]
